FAERS Safety Report 4618763-9 (Version None)
Quarter: 2005Q1

REPORT INFORMATION
  Report Type: 
  Country: None (occurrence: None)
  Receive Date: 20050323
  Receipt Date: 20050312
  Transmission Date: 20050727
  Serious: Yes (Other)
  Sender: FDA-Public Use
  Company Number: 2005044705

PATIENT
  Age: 66 Year
  Sex: Female
  Weight: 81.6475 kg

DRUGS (5)
  1. NEURONTIN [Suspect]
     Indication: ARTHRITIS
     Dosage: 300 MG (100 MG , 3 IN 1 D), ORAL
     Route: 048
     Dates: start: 20040101
  2. DYAZIDE [Concomitant]
  3. ATENOLOL [Concomitant]
  4. ESTROGEN NOS (ESTROGEN NOS) [Concomitant]
  5. VITAMINS  (VITAMINS) [Concomitant]

REACTIONS (5)
  - BEDRIDDEN [None]
  - CONDITION AGGRAVATED [None]
  - DRUG INEFFECTIVE [None]
  - IMMOBILE [None]
  - INFLAMMATION [None]
